FAERS Safety Report 6120755-8 (Version None)
Quarter: 2009Q1

REPORT INFORMATION
  Report Type: 
  Country: None (occurrence: None)
  Receive Date: 20090317
  Receipt Date: 20090311
  Transmission Date: 20090719
  Serious: Yes (Hospitalization, Other)
  Sender: FDA-Public Use
  Company Number: US-BAYER-200827516NA

PATIENT
  Age: 41 Year
  Sex: Female
  Weight: 74 kg

DRUGS (20)
  1. CLIMARA [Suspect]
     Indication: MENOPAUSAL SYMPTOMS
     Route: 062
     Dates: start: 19951006, end: 19970207
  2. ESTRADERM [Suspect]
     Indication: MENOPAUSAL SYMPTOMS
     Route: 062
     Dates: end: 19951006
  3. PREMPRO [Suspect]
     Indication: MENOPAUSAL SYMPTOMS
     Dates: start: 19970207, end: 20000101
  4. DEPO-PROVERA [Suspect]
     Indication: MENOPAUSAL SYMPTOMS
     Dates: start: 19900101
  5. PAXIL [Concomitant]
     Indication: DEPRESSION
     Dosage: TOTAL DAILY DOSE: 40 MG
     Route: 048
     Dates: start: 20070601
  6. PAXIL [Concomitant]
     Route: 048
     Dates: start: 19960101
  7. PREMPRO [Concomitant]
     Indication: DRUG USE FOR UNKNOWN INDICATION
     Route: 048
     Dates: start: 19990628
  8. VIOXX [Concomitant]
     Indication: OSTEOARTHRITIS
     Route: 048
     Dates: start: 19900101, end: 19950101
  9. VIOXX [Concomitant]
     Dosage: TOTAL DAILY DOSE: 25 MG
     Route: 048
     Dates: start: 19990101
  10. EXCEDRIN (MIGRAINE) [Concomitant]
     Indication: MIGRAINE
  11. BEXTRA [Concomitant]
     Indication: OSTEOARTHRITIS
  12. BONIVA [Concomitant]
     Indication: OSTEOPENIA
     Dates: start: 20050601
  13. HYDROCHLOROTHIAZIDE [Concomitant]
     Indication: HYPERTENSION
     Route: 048
     Dates: start: 20050601, end: 20071101
  14. HYDROCHLOROTHIAZIDE [Concomitant]
     Route: 048
     Dates: start: 20080601
  15. CAPOTEN [Concomitant]
     Indication: HYPERTENSION
     Dates: start: 20050224
  16. VITAMIN D [Concomitant]
     Indication: OSTEOPENIA
     Dosage: TOTAL DAILY DOSE: 800 MG
     Dates: start: 20090101
  17. ASCORBIC ACID [Concomitant]
  18. VITAMIN E [Concomitant]
  19. FOSAMAX [Concomitant]
     Indication: OSTEOPENIA
     Dates: start: 20050201
  20. ROGAINE [Concomitant]
     Indication: ALOPECIA

REACTIONS (9)
  - ASTHENIA [None]
  - BALANCE DISORDER [None]
  - BONE PAIN [None]
  - BREAST CANCER [None]
  - BREAST MASS [None]
  - ENDOMETRIAL HYPERTROPHY [None]
  - FIBROCYSTIC BREAST DISEASE [None]
  - HOT FLUSH [None]
  - VAGINAL HAEMORRHAGE [None]
